FAERS Safety Report 11193788 (Version 1)
Quarter: 2015Q2

REPORT INFORMATION
  Report Type: Spontaneous
  Country: GB (occurrence: GB)
  Receive Date: 20150616
  Receipt Date: 20150616
  Transmission Date: 20150821
  Serious: Yes (Hospitalization, Other)
  Sender: FDA-Public Use
  Company Number: GB-GLAXOSMITHKLINE INC.-GB2015082395

PATIENT
  Age: 23 Year
  Sex: Female
  Weight: 71.7 kg

DRUGS (12)
  1. SIMPLE LINCTUS [Concomitant]
     Active Substance: AMARANTH\CHLOROFORM\CITRIC ACID MONOHYDRATE\PIMPINELLA ANISUM WHOLE
     Dosage: TAKE AS REQUIRED UP TO 4 TIMES A DAY.
     Route: 048
  2. LEVOMEPROMAZINE [Suspect]
     Active Substance: LEVOMEPROMAZINE
  3. CLONAZEPAM. [Concomitant]
     Active Substance: CLONAZEPAM
  4. DIFFERIN [Concomitant]
     Active Substance: ADAPALENE
     Route: 061
  5. PARACETAMOL [Concomitant]
     Active Substance: ACETAMINOPHEN
     Dosage: TAKE AS REQUIRED UP TO 4 TIMES A DAY.
     Route: 048
  6. CLINDAMYCIN [Concomitant]
     Active Substance: CLINDAMYCIN\CLINDAMYCIN PHOSPHATE
     Route: 061
  7. LAMOTRIGINE. [Suspect]
     Active Substance: LAMOTRIGINE
     Indication: AFFECTIVE DISORDER
     Route: 048
     Dates: start: 20150530, end: 20150530
  8. DIAZEPAM. [Concomitant]
     Active Substance: DIAZEPAM
     Dosage: TAKE AS REQUIRED UP TO TWICE A DAY.
     Route: 048
  9. MELATONIN [Suspect]
     Active Substance: MELATONIN
     Dosage: AT NIGHT.
  10. CAFFEINE. [Suspect]
     Active Substance: CAFFEINE
  11. HALOPERIDOL. [Concomitant]
     Active Substance: HALOPERIDOL
     Dosage: TAKE AS REQUIRED UP TO TWICE A DAY.
     Route: 048
  12. FLUOXETINE [Suspect]
     Active Substance: FLUOXETINE\FLUOXETINE HYDROCHLORIDE

REACTIONS (9)
  - Hypoaesthesia [Recovering/Resolving]
  - Hypoaesthesia oral [Recovering/Resolving]
  - Restlessness [Recovering/Resolving]
  - Dizziness [Recovering/Resolving]
  - Abdominal discomfort [Recovering/Resolving]
  - Dyspnoea [Recovering/Resolving]
  - Malaise [Recovering/Resolving]
  - Palpitations [Recovering/Resolving]
  - Paraesthesia [Recovering/Resolving]

NARRATIVE: CASE EVENT DATE: 20150530
